FAERS Safety Report 6731130-7 (Version None)
Quarter: 2010Q2

REPORT INFORMATION
  Report Type: 
  Country: None (occurrence: None)
  Receive Date: 20100518
  Receipt Date: 20100505
  Transmission Date: 20101027
  Serious: Yes (Death, Other)
  Sender: FDA-Public Use
  Company Number: FR-GENENTECH-300971

PATIENT
  Sex: Female

DRUGS (8)
  1. LUCENTIS [Suspect]
     Indication: MACULAR DEGENERATION
     Dosage: UNK
     Route: 031
     Dates: start: 20081125
  2. LUCENTIS [Suspect]
     Dosage: UNK
     Route: 031
     Dates: start: 20081216
  3. LUCENTIS [Suspect]
     Dosage: UNK
     Route: 031
     Dates: start: 20090113
  4. LUCENTIS [Suspect]
     Dosage: UNK
     Route: 031
     Dates: start: 20090604
  5. LUCENTIS [Suspect]
     Dosage: UNK
     Route: 031
     Dates: start: 20081014
  6. LUCENTIS [Suspect]
     Dosage: UNK
     Route: 031
     Dates: start: 20081118
  7. LUCENTIS [Suspect]
     Dosage: UNK
     Route: 031
     Dates: start: 20090505
  8. MACUGEN [Concomitant]
     Indication: DRUG USE FOR UNKNOWN INDICATION
     Dosage: UNK
     Route: 065
     Dates: start: 20080914

REACTIONS (4)
  - DEATH [None]
  - DECREASED APPETITE [None]
  - INAPPROPRIATE SCHEDULE OF DRUG ADMINISTRATION [None]
  - WEIGHT DECREASED [None]
